FAERS Safety Report 12983825 (Version 3)
Quarter: 2017Q1

REPORT INFORMATION
  Report Type: Spontaneous
  Country: GR (occurrence: GR)
  Receive Date: 20161129
  Receipt Date: 20170202
  Transmission Date: 20170428
  Serious: Yes (Other)
  Sender: FDA-Public Use
  Company Number: GR-INCYTE CORPORATION-2016IN007472

PATIENT
  Age: 68 Year
  Sex: Male

DRUGS (1)
  1. JAKAVI [Suspect]
     Active Substance: RUXOLITINIB
     Indication: MYELOFIBROSIS
     Dosage: 20 MG, BID (20 MG X 2 DAILY)
     Route: 065
     Dates: start: 201607

REACTIONS (8)
  - Abnormal behaviour [Recovered/Resolved]
  - Pyrexia [Recovered/Resolved]
  - Leukocytosis [Recovered/Resolved]
  - Headache [Recovered/Resolved]
  - Gait disturbance [Recovered/Resolved]
  - Epstein-Barr virus test positive [Recovered/Resolved]
  - Meningitis viral [Unknown]
  - Balance disorder [Recovered/Resolved]
